FAERS Safety Report 11662551 (Version 1)
Quarter: 2015Q4

REPORT INFORMATION
  Report Type: Spontaneous
  Country: US (occurrence: US)
  Receive Date: 20151027
  Receipt Date: 20151027
  Transmission Date: 20160304
  Serious: No
  Sender: FDA-Public Use
  Company Number: US-MEDA-2013100137

PATIENT
  Age: 69 Year
  Sex: Male
  Weight: 82 kg

DRUGS (11)
  1. FLAXSEED [Concomitant]
     Active Substance: FLAX SEED
     Route: 048
     Dates: start: 2011
  2. SAW PALMETTO [Concomitant]
     Active Substance: SAW PALMETTO
     Indication: POLLAKIURIA
     Route: 048
  3. CENTRUM SILVER [Concomitant]
     Active Substance: MINERALS\VITAMINS
  4. COLACE [Concomitant]
     Active Substance: DOCUSATE SODIUM
     Route: 048
  5. DEPAKOTE [Concomitant]
     Active Substance: DIVALPROEX SODIUM
     Route: 048
  6. PRAVASTATIN [Concomitant]
     Active Substance: PRAVASTATIN\PRAVASTATIN SODIUM
     Indication: BLOOD CHOLESTEROL INCREASED
  7. COQ 10 [Concomitant]
     Active Substance: UBIDECARENONE
     Indication: CARDIOVASCULAR EVENT PROPHYLAXIS
     Route: 048
     Dates: start: 2012
  8. LIPITOR [Concomitant]
     Active Substance: ATORVASTATIN CALCIUM
     Indication: BLOOD CHOLESTEROL INCREASED
     Route: 048
     Dates: start: 2013
  9. ASTEPRO [Suspect]
     Active Substance: AZELASTINE HYDROCHLORIDE
     Indication: PRODUCTIVE COUGH
     Dates: start: 201309
  10. WELLBUTRIN [Concomitant]
     Active Substance: BUPROPION HYDROCHLORIDE
     Route: 048
  11. PINDOLOL. [Concomitant]
     Active Substance: PINDOLOL
     Indication: HYPERTENSION

REACTIONS (1)
  - Nasal mucosal hypertrophy [Not Recovered/Not Resolved]

NARRATIVE: CASE EVENT DATE: 2013
